FAERS Safety Report 4543931-4 (Version None)
Quarter: 2005Q1

REPORT INFORMATION
  Report Type: 
  Country: None (occurrence: None)
  Receive Date: 20050104
  Receipt Date: 20041229
  Transmission Date: 20050727
  Serious: Yes (Hospitalization)
  Sender: FDA-Public Use
  Company Number: US-JNJFOC-20041207511

PATIENT
  Sex: Male

DRUGS (4)
  1. DURAGESIC [Suspect]
     Route: 062
     Dates: start: 20030812
  2. DURAGESIC [Suspect]
     Route: 062
     Dates: start: 20030812
  3. DURAGESIC [Suspect]
     Route: 062
     Dates: start: 20030812
  4. DURAGESIC [Suspect]
     Route: 062
     Dates: start: 20030812

REACTIONS (1)
  - CEREBROVASCULAR ACCIDENT [None]
